FAERS Safety Report 24357594 (Version 1)
Quarter: 2024Q3

REPORT INFORMATION
  Report Type: Spontaneous
  Country: US (occurrence: None)
  Receive Date: 20240923
  Receipt Date: 20240923
  Transmission Date: 20241016
  Serious: Yes (Other)
  Sender: Public
  Company Number: None

PATIENT
  Age: 24 Year
  Sex: Female
  Weight: 80.1 kg

DRUGS (4)
  1. SPIRONOLACTONE [Suspect]
     Active Substance: SPIRONOLACTONE
     Indication: Acne
     Dosage: 1 CAPSULE ORAL
     Route: 048
  2. tretnoin [Concomitant]
  3. BENZOYL PEROXIDE [Concomitant]
     Active Substance: BENZOYL PEROXIDE
  4. clyndamyicin lotion [Concomitant]

REACTIONS (3)
  - Affective disorder [None]
  - Mental disorder [None]
  - Product communication issue [None]

NARRATIVE: CASE EVENT DATE: 20240923
